FAERS Safety Report 24573234 (Version 1)
Quarter: 2024Q4

REPORT INFORMATION
  Report Type: Spontaneous
  Country: CH (occurrence: CH)
  Receive Date: 20241101
  Receipt Date: 20241101
  Transmission Date: 20250115
  Serious: Yes (Other)
  Sender: ELI LILLY AND COMPANY
  Company Number: None

PATIENT
  Age: 5 Year
  Sex: Female
  Weight: 13 kg

DRUGS (10)
  1. OLUMIANT [Suspect]
     Active Substance: BARICITINIB
     Indication: Systemic lupus erythematosus
     Dosage: 2 MG, BID
     Route: 048
     Dates: start: 20220601, end: 20240609
  2. OLUMIANT [Suspect]
     Active Substance: BARICITINIB
     Dosage: 2 MG, BID
     Route: 048
     Dates: start: 20240618, end: 20240628
  3. VALCYTE [Suspect]
     Active Substance: VALGANCICLOVIR HYDROCHLORIDE
     Indication: Cytomegalovirus test positive
     Dosage: 185 MG, WEEKLY (1/W)
     Route: 065
     Dates: start: 202404, end: 202406
  4. SULFAMETHOXAZOLE\TRIMETHOPRIM [Suspect]
     Active Substance: SULFAMETHOXAZOLE\TRIMETHOPRIM
     Indication: Product used for unknown indication
     Dosage: 68MG 3X SEM
     Route: 048
     Dates: start: 202404, end: 20240605
  5. SULFAMETHOXAZOLE\TRIMETHOPRIM [Suspect]
     Active Substance: SULFAMETHOXAZOLE\TRIMETHOPRIM
     Dosage: 75MG 3X SEM PAR PEG
     Route: 050
     Dates: start: 20240620, end: 20240628
  6. ESOMEPRAZOLE [Concomitant]
     Active Substance: ESOMEPRAZOLE
     Indication: Product used for unknown indication
     Dosage: 5MG THEN 10MG 1X DAY, UNKNOWN
     Route: 048
     Dates: end: 20240617
  7. TACROLIMUS [Concomitant]
     Active Substance: TACROLIMUS
     Indication: Product used for unknown indication
     Dosage: 5MG THEN 10MG 1X DAY
     Route: 048
     Dates: end: 20240610
  8. TACROLIMUS [Concomitant]
     Active Substance: TACROLIMUS
     Dosage: 5MG THEN 10MG 1X DAY
     Route: 048
     Dates: start: 20240611
  9. AMOXICILLIN\CLAVULANATE POTASSIUM [Concomitant]
     Active Substance: AMOXICILLIN\CLAVULANATE POTASSIUM
     Indication: Product used for unknown indication
     Dosage: 5MG THEN 10MG 1XDAY, UNK
     Route: 048
     Dates: start: 20240417, end: 20240424
  10. AMOXICILLIN\CLAVULANATE POTASSIUM [Concomitant]
     Active Substance: AMOXICILLIN\CLAVULANATE POTASSIUM
     Dosage: 5MG THEN 10MG 1X DAY
     Route: 048
     Dates: start: 20240511, end: 20240515

REACTIONS (5)
  - Agranulocytosis [Recovered/Resolved]
  - Agranulocytosis [Not Recovered/Not Resolved]
  - Epstein-Barr virus infection [Unknown]
  - Cytomegalovirus infection [Unknown]
  - Off label use [Unknown]

NARRATIVE: CASE EVENT DATE: 20240511
